FAERS Safety Report 10723678 (Version 2)
Quarter: 2015Q1

REPORT INFORMATION
  Report Type: Spontaneous
  Country: CA (occurrence: None)
  Receive Date: 20150115
  Receipt Date: 20150202
  Transmission Date: 20150721
  Serious: Yes (Other)
  Sender: FDA-Public Use
  Company Number: 20150005

PATIENT
  Age: 71 Year
  Sex: Male

DRUGS (10)
  1. VITAMIN B12 [Concomitant]
     Active Substance: CYANOCOBALAMIN
  2. INSULIN N [Concomitant]
  3. INSULIN R [Concomitant]
  4. ASPIRIN. [Concomitant]
     Active Substance: ASPIRIN
  5. LABETALOL (TRANDATE) [Concomitant]
  6. DEXIRON (IRON DEXTRAN INJECTION, USP) (0134C) (IRON DEXTRAN) 50 MG/ML FE++ + [Suspect]
     Active Substance: IRON DEXTRAN
     Indication: ANAEMIA
     Route: 042
     Dates: start: 20141125, end: 20141209
  7. ATORVASTATIN [Concomitant]
     Active Substance: ATORVASTATIN
  8. VALSARTAN. [Concomitant]
     Active Substance: VALSARTAN
  9. PARIET (RABEPRAZOLE) [Concomitant]
     Active Substance: RABEPRAZOLE SODIUM
  10. NIFEDIPINE. [Concomitant]
     Active Substance: NIFEDIPINE

REACTIONS (5)
  - Dyspnoea [None]
  - Blood pressure decreased [None]
  - Oxygen saturation decreased [None]
  - Flushing [None]
  - Wheezing [None]

NARRATIVE: CASE EVENT DATE: 20141209
